FAERS Safety Report 15687104 (Version 1)
Quarter: 2018Q4

REPORT INFORMATION
  Report Type: Report from Study
  Country: None (occurrence: AU)
  Receive Date: 20181204
  Receipt Date: 20181204
  Transmission Date: 20190205
  Serious: Yes (Hospitalization)
  Sender: FDA-Public Use
  Company Number: AU-ABBVIE-18S-008-2555747-00

PATIENT
  Sex: Male

DRUGS (1)
  1. LUCRIN DEPOT [Suspect]
     Active Substance: LEUPROLIDE ACETATE
     Indication: PROSTATE CANCER
     Route: 030
     Dates: start: 20180927

REACTIONS (3)
  - Escherichia bacteraemia [Recovered/Resolved]
  - Staphylococcal infection [Not Recovered/Not Resolved]
  - Asthenia [Unknown]

NARRATIVE: CASE EVENT DATE: 2018
